FAERS Safety Report 7037680-0 (Version None)
Quarter: 2010Q4

REPORT INFORMATION
  Report Type: 
  Country: None (occurrence: None)
  Receive Date: 20101011
  Receipt Date: 20100930
  Transmission Date: 20110411
  Serious: Yes (Other)
  Sender: FDA-Public Use
  Company Number: CA-JNJFOC-20101000571

PATIENT
  Sex: Female
  Weight: 75 kg

DRUGS (2)
  1. REMICADE [Suspect]
     Indication: RHEUMATOID ARTHRITIS
     Dosage: A TOTAL OF 40 INFUSIONS
     Route: 042
  2. METHOTREXATE [Concomitant]
     Route: 048

REACTIONS (2)
  - FOOT OPERATION [None]
  - WOUND INFECTION [None]
